FAERS Safety Report 25529404 (Version 6)
Quarter: 2025Q4

REPORT INFORMATION
  Report Type: Spontaneous
  Country: EU (occurrence: EU)
  Receive Date: 20250708
  Receipt Date: 20251009
  Transmission Date: 20260119
  Serious: Yes (Death, Hospitalization, Other)
  Sender: PFIZER
  Company Number: EU-SANDOZ-SDZ2025CZ045250

PATIENT
  Age: 70 Year
  Sex: Female
  Weight: 70 kg

DRUGS (18)
  1. SOLU-MEDROL [Suspect]
     Active Substance: METHYLPREDNISOLONE SODIUM SUCCINATE
     Dosage: UNK
     Route: 065
     Dates: start: 20250604, end: 20250604
  2. PANTOPRAZOLE [Suspect]
     Active Substance: PANTOPRAZOLE
     Dosage: UNK
     Route: 065
  3. UNASYN [Suspect]
     Active Substance: AMPICILLIN SODIUM\SULBACTAM SODIUM
     Indication: Cellulitis
     Dosage: 1.5 G, 3X/DAY (Q8H)
     Route: 042
     Dates: start: 20250609
  4. DICLOFENAC POTASSIUM [Suspect]
     Active Substance: DICLOFENAC POTASSIUM
     Dosage: UNK
     Route: 065
  5. CALCIUM CARBONATE\CALCIUM PHOSPHATE\PHOSPHORUS\SILICON DIOXIDE\SILVER [Suspect]
     Active Substance: CALCIUM CARBONATE\CALCIUM PHOSPHATE\PHOSPHORUS\SILICON DIOXIDE\SILVER NITRATE
     Dosage: UNK
     Route: 065
  6. DECADRON [Suspect]
     Active Substance: DEXAMETHASONE
     Dosage: UNK
     Route: 065
     Dates: start: 20250604, end: 20250604
  7. METOPROLOL TARTRATE [Suspect]
     Active Substance: METOPROLOL TARTRATE
     Dosage: UNK
     Route: 065
  8. OMEPRAZOLE [Suspect]
     Active Substance: OMEPRAZOLE
     Dosage: UNK
     Route: 065
  9. ITOPRIDE HYDROCHLORIDE [Suspect]
     Active Substance: ITOPRIDE HYDROCHLORIDE
     Dosage: UNK
     Route: 065
  10. LEVOTHYROXINE [Suspect]
     Active Substance: LEVOTHYROXINE
     Dosage: UNK
     Route: 065
  11. LOPERAMIDE HYDROCHLORIDE [Suspect]
     Active Substance: LOPERAMIDE HYDROCHLORIDE
     Dosage: UNK
     Route: 065
  12. ONDANSETRON [Suspect]
     Active Substance: ONDANSETRON
     Dosage: UNK
     Route: 065
     Dates: start: 20250604, end: 20250604
  13. SACITUZUMAB GOVITECAN [Suspect]
     Active Substance: SACITUZUMAB GOVITECAN
     Indication: Endometrial cancer
     Dosage: 700 MG, 1X/DAY (QD)
     Route: 042
     Dates: start: 20250604, end: 20250604
  14. SYMBICORT [Suspect]
     Active Substance: BUDESONIDE\FORMOTEROL FUMARATE DIHYDRATE
     Dosage: UNK
     Route: 065
  15. FILGRASTIM [Suspect]
     Active Substance: FILGRASTIM
     Dosage: UNK
     Route: 065
     Dates: start: 20250604, end: 20250607
  16. ZIEXTENZO [Suspect]
     Active Substance: PEGFILGRASTIM-BMEZ
     Indication: Prophylaxis
     Dosage: 6 MG
     Route: 058
     Dates: start: 20250606, end: 20250606
  17. ZOFRAN [Suspect]
     Active Substance: ONDANSETRON HYDROCHLORIDE
     Dosage: UNK
     Route: 065
     Dates: start: 20250604, end: 20250607
  18. ONDANSETRON [Suspect]
     Active Substance: ONDANSETRON
     Dosage: UNK
     Dates: start: 2025

REACTIONS (2)
  - Neutropenia [Fatal]
  - Cellulitis [Fatal]

NARRATIVE: CASE EVENT DATE: 20250609
